FAERS Safety Report 5064418-9 (Version None)
Quarter: 2006Q3

REPORT INFORMATION
  Report Type: 
  Country: None (occurrence: None)
  Receive Date: 20060728
  Receipt Date: 20060717
  Transmission Date: 20061208
  Serious: Yes (Life-Threatening, Hospitalization)
  Sender: FDA-Public Use
  Company Number: GB-BRISTOL-MYERS SQUIBB COMPANY-13455217

PATIENT
  Age: 81 Year
  Sex: Female

DRUGS (6)
  1. METFORMIN HYDROCHLORIDE [Suspect]
     Indication: DIABETES MELLITUS INADEQUATE CONTROL
     Route: 048
     Dates: start: 20060516, end: 20060605
  2. GLICLAZIDE [Suspect]
     Indication: DIABETES MELLITUS
     Route: 048
  3. PERINDOPRIL [Suspect]
     Indication: HYPERTENSION
     Route: 048
  4. AMITRIPTYLINE HCL [Concomitant]
     Route: 048
     Dates: end: 20060605
  5. SYMBICORT [Concomitant]
     Indication: CHRONIC OBSTRUCTIVE PULMONARY DISEASE
     Route: 055
  6. SIMVASTIN [Concomitant]
     Indication: BLOOD CHOLESTEROL INCREASED
     Route: 048

REACTIONS (2)
  - CIRCULATORY COLLAPSE [None]
  - HYPOGLYCAEMIA [None]
